FAERS Safety Report 13608318 (Version 3)
Quarter: 2017Q4

REPORT INFORMATION
  Report Type: Spontaneous
  Country: HU (occurrence: HU)
  Receive Date: 20170602
  Receipt Date: 20171120
  Transmission Date: 20180320
  Serious: Yes (Other)
  Sender: FDA-Public Use
  Company Number: HU-PFIZER INC-2015478225

PATIENT
  Age: 41 Year
  Sex: Male

DRUGS (1)
  1. SUTENT [Suspect]
     Active Substance: SUNITINIB MALATE
     Indication: RENAL CANCER
     Dosage: 50 MG, 1X/DAY
     Route: 048
     Dates: start: 201511

REACTIONS (2)
  - Thrombocytopenia [Recovered/Resolved]
  - Skin necrosis [Recovered/Resolved]
